FAERS Safety Report 14250530 (Version 2)
Quarter: 2018Q2

REPORT INFORMATION
  Report Type: Report from Study
  Country: None (occurrence: US)
  Receive Date: 20171205
  Receipt Date: 20180403
  Transmission Date: 20180711
  Serious: Yes (Other)
  Sender: FDA-Public Use
  Company Number: US-ABBVIE-17K-163-2073303-00

PATIENT
  Age: 62 Year
  Sex: Female

DRUGS (1)
  1. HUMIRA [Suspect]
     Active Substance: ADALIMUMAB
     Indication: CROHN^S DISEASE
     Route: 058

REACTIONS (8)
  - Intervertebral disc protrusion [Recovering/Resolving]
  - Mesenteric vascular insufficiency [Unknown]
  - Nerve root compression [Recovering/Resolving]
  - Injection site erosion [Unknown]
  - Device issue [Unknown]
  - Injection site erosion [Unknown]
  - Pouchitis [Unknown]
  - Diarrhoea [Unknown]

NARRATIVE: CASE EVENT DATE: 2015
